FAERS Safety Report 4622830-3 (Version None)
Quarter: 2005Q1

REPORT INFORMATION
  Report Type: 
  Country: None (occurrence: None)
  Receive Date: 20050330
  Receipt Date: 19980312
  Transmission Date: 20050727
  Serious: Yes (Hospitalization)
  Sender: FDA-Public Use
  Company Number: US-GLAXOSMITHKLINE-A0062194A

PATIENT
  Sex: Male

DRUGS (7)
  1. LAMICTAL [Suspect]
     Indication: EPILEPSY
     Route: 048
  2. DILANTIN [Concomitant]
     Dosage: 500MG PER DAY
     Route: 048
  3. DEPAKOTE [Concomitant]
     Dosage: 750MG FOUR TIMES PER DAY
     Route: 048
  4. SUCRALFATE [Concomitant]
     Indication: ULCER
     Dosage: 1MG SIX TIMES PER DAY
     Route: 048
  5. TEGRETOL [Concomitant]
  6. GABAPENTIN [Concomitant]
  7. NEURONTIN [Concomitant]

REACTIONS (7)
  - ADVERSE EVENT [None]
  - AMNESIA [None]
  - CHILLS [None]
  - DYSGEUSIA [None]
  - HYPOAESTHESIA [None]
  - SKIN WARM [None]
  - SOMNOLENCE [None]
